FAERS Safety Report 22375510 (Version 1)
Quarter: 2023Q2

REPORT INFORMATION
  Report Type: Other
  Country: US (occurrence: None)
  Receive Date: 20230527
  Receipt Date: 20230527
  Transmission Date: 20230722
  Serious: Yes (Hospitalization)
  Sender: FDA-Public Use
  Company Number: US-ROCHE-3320533

PATIENT
  Age: 80 Year
  Sex: Male

DRUGS (7)
  1. ESBRIET [Suspect]
     Active Substance: PIRFENIDONE
     Indication: Pulmonary fibrosis
     Route: 048
  2. NORVASC [Concomitant]
     Active Substance: AMLODIPINE BESYLATE
  3. ELIQUIS [Concomitant]
     Active Substance: APIXABAN
  4. ECOTRIN [Concomitant]
     Active Substance: ASPIRIN
  5. BUMEX [Concomitant]
     Active Substance: BUMETANIDE
  6. CELEXA [Concomitant]
     Active Substance: CITALOPRAM HYDROBROMIDE
  7. MEPRON (UNITED STATES) [Concomitant]

REACTIONS (2)
  - Limb injury [Unknown]
  - Off label use [Unknown]
